FAERS Safety Report 4327150-2 (Version None)
Quarter: 2004Q1

REPORT INFORMATION
  Report Type: 
  Country: None (occurrence: None)
  Receive Date: 20040330
  Receipt Date: 20040223
  Transmission Date: 20041129
  Serious: Yes (Disabling)
  Sender: FDA-Public Use
  Company Number: FR-GLAXOSMITHKLINE-B0324978A

PATIENT
  Age: 55 Year
  Sex: Male
  Weight: 95 kg

DRUGS (5)
  1. AVANDIA [Suspect]
     Indication: DIABETES MELLITUS NON-INSULIN-DEPENDENT
     Dosage: 4MG PER DAY
     Route: 048
     Dates: start: 20030703, end: 20040212
  2. DIAMICRON [Concomitant]
     Dosage: 30MG THREE TIMES PER DAY
     Route: 048
     Dates: start: 20020101
  3. BISOPROLOL FUMARATE [Concomitant]
     Indication: HYPERTENSION
     Dosage: 10MG PER DAY
     Route: 048
  4. AMLOR [Concomitant]
     Indication: HYPERTENSION
     Dosage: 5MG PER DAY
     Route: 048
  5. VASTAREL [Concomitant]
     Indication: ANGIOPATHY
     Dosage: 25MG TWICE PER DAY
     Route: 048
     Dates: start: 20020101

REACTIONS (6)
  - ABDOMINAL PAIN [None]
  - ANXIETY [None]
  - COLITIS [None]
  - FLATULENCE [None]
  - IRRITABILITY [None]
  - SLEEP DISORDER [None]
